FAERS Safety Report 14594822 (Version 1)
Quarter: 2018Q1

REPORT INFORMATION
  Report Type: Spontaneous
  Country: US (occurrence: US)
  Receive Date: 20180302
  Receipt Date: 20180302
  Transmission Date: 20180509
  Serious: No
  Sender: FDA-Public Use
  Company Number: US-AKORN PHARMACEUTICALS-2017AKN00484

PATIENT
  Sex: Male
  Weight: 56.24 kg

DRUGS (5)
  1. ^AMITHROCIN^ (UNSPECIFIED) [Suspect]
     Active Substance: UNSPECIFIED INGREDIENT
     Indication: IMPETIGO
     Dosage: UNK
     Dates: start: 2017, end: 2017
  2. ADDERALL XR [Concomitant]
     Active Substance: AMPHETAMINE ASPARTATE\AMPHETAMINE SULFATE\DEXTROAMPHETAMINE SACCHARATE\DEXTROAMPHETAMINE SULFATE
     Dosage: 15 MG, 1X/DAY
  3. MYORISAN [Suspect]
     Active Substance: ISOTRETINOIN
     Indication: ACNE CYSTIC
     Dosage: 20 MG, 2X/DAY
     Route: 048
     Dates: start: 201704
  4. ZYRTEC [Suspect]
     Active Substance: CETIRIZINE HYDROCHLORIDE
     Indication: PRURITUS
     Dosage: 10 MG, 1X/DAY
     Dates: start: 201704
  5. JUICE PLUS VITAMIN [Concomitant]

REACTIONS (6)
  - Wound [Unknown]
  - Back pain [Recovering/Resolving]
  - Musculoskeletal stiffness [Not Recovered/Not Resolved]
  - Impetigo [Recovering/Resolving]
  - Muscle tightness [Not Recovered/Not Resolved]
  - Rash [Recovering/Resolving]

NARRATIVE: CASE EVENT DATE: 2017
